FAERS Safety Report 18231895 (Version 1)
Quarter: 2020Q3

REPORT INFORMATION
  Report Type: Spontaneous
  Country: US (occurrence: US)
  Receive Date: 20200904
  Receipt Date: 20200904
  Transmission Date: 20201103
  Serious: Yes (Other)
  Sender: FDA-Public Use
  Company Number: US-MYLANLABS-2020M1075543

PATIENT
  Age: 68 Year
  Sex: Female

DRUGS (13)
  1. DILTIAZEM. [Suspect]
     Active Substance: DILTIAZEM
     Indication: HYPERTENSION
     Dosage: 120 MILLIGRAM, QD, (ONE CAPSULE BY MOUTH ONCE DAILY)
     Route: 048
     Dates: start: 201908
  2. DILTIAZEM. [Suspect]
     Active Substance: DILTIAZEM
     Dosage: 240 MILLIGRAM, QD, (ONE CAPSULE BY MOUTH ONCE DAILY)
     Route: 048
     Dates: start: 20200219
  3. DILTIAZEM. [Suspect]
     Active Substance: DILTIAZEM
     Dosage: 120 MILLIGRAM, QD, (ONE CAPSULE BY MOUTH ONCE DAILY)
     Route: 048
     Dates: start: 202006, end: 2020
  4. LOSARTAN. [Concomitant]
     Active Substance: LOSARTAN
     Indication: HYPERTENSION
     Dosage: 50 MILLIGRAM, BID
  5. AMLODIPINE [Suspect]
     Active Substance: AMLODIPINE BESYLATE
     Indication: HYPERTENSION
     Dosage: UNK
  6. SERTRALINE [Suspect]
     Active Substance: SERTRALINE HYDROCHLORIDE
     Dosage: 50 MILLIGRAM, (QUARTER FOR ONE WEEK)
     Route: 048
     Dates: end: 20200809
  7. TRAMADOL. [Concomitant]
     Active Substance: TRAMADOL
     Indication: FIBROMYALGIA
  8. CLONAZEPAM. [Concomitant]
     Active Substance: CLONAZEPAM
     Indication: ANXIETY
     Dosage: 0.5 MILLIGRAM, BID
  9. VITAMIN D                          /00107901/ [Concomitant]
     Active Substance: ERGOCALCIFEROL
     Dosage: UNK
  10. SERTRALINE [Suspect]
     Active Substance: SERTRALINE HYDROCHLORIDE
     Indication: PANIC DISORDER
     Dosage: 50 MILLIGRAM, (HALF FOR TWO WEEKS)
     Route: 048
  11. SERTRALINE [Suspect]
     Active Substance: SERTRALINE HYDROCHLORIDE
     Indication: ANXIETY
     Dosage: 50 MILLIGRAM, QD, (ONE TABLET BY MOUTH ONCE DAILY)
     Route: 048
  12. HYDROCHLOROTHIAZIDE. [Concomitant]
     Active Substance: HYDROCHLOROTHIAZIDE
     Indication: HYPERTENSION
     Dosage: 25 MILLIGRAM, QD
  13. TRAMADOL. [Concomitant]
     Active Substance: TRAMADOL
     Indication: ARTHRITIS
     Dosage: 50 MILLIGRAM, BID

REACTIONS (12)
  - Feeling hot [Not Recovered/Not Resolved]
  - Alopecia [Recovered/Resolved]
  - Intentional product use issue [Recovered/Resolved]
  - Loss of consciousness [Recovered/Resolved]
  - Arrhythmia [Recovered/Resolved]
  - Nocturia [Recovered/Resolved]
  - Influenza [Recovered/Resolved]
  - Cough [Recovered/Resolved]
  - Sinus arrhythmia [Recovered/Resolved]
  - COVID-19 [Recovered/Resolved]
  - Vertigo [Recovered/Resolved]
  - Pyrexia [Recovered/Resolved]

NARRATIVE: CASE EVENT DATE: 201912
